FAERS Safety Report 22004294 (Version 3)
Quarter: 2023Q1

REPORT INFORMATION
  Report Type: Report from Study
  Country: RU (occurrence: RU)
  Receive Date: 20230217
  Receipt Date: 20230314
  Transmission Date: 20230418
  Serious: Yes (Hospitalization, Other)
  Sender: FDA-Public Use
  Company Number: RU-JNJFOC-20221034746

PATIENT
  Age: 43 Year
  Sex: Female
  Weight: 64 kg

DRUGS (13)
  1. PONESIMOD [Suspect]
     Active Substance: PONESIMOD
     Indication: Relapsing-remitting multiple sclerosis
     Route: 048
     Dates: start: 20101019, end: 20171001
  2. PONESIMOD [Suspect]
     Active Substance: PONESIMOD
     Route: 048
     Dates: start: 20171002
  3. MARVELON [Concomitant]
     Active Substance: DESOGESTREL\ETHINYL ESTRADIOL
     Indication: Contraception
     Route: 048
     Dates: start: 20100914
  4. AMIGRENIN [Concomitant]
     Indication: Migraine
     Route: 048
     Dates: start: 20131022
  5. AMIGRENIN [Concomitant]
     Route: 048
     Dates: start: 20180102
  6. ACETAMINOPHEN [Concomitant]
     Active Substance: ACETAMINOPHEN
     Indication: Migraine
     Route: 048
     Dates: start: 20180102
  7. KEPPRA [Concomitant]
     Active Substance: LEVETIRACETAM
     Indication: Migraine
     Route: 048
     Dates: start: 20190128
  8. KETOROLAC TROMETHAMINE [Concomitant]
     Active Substance: KETOROLAC TROMETHAMINE
     Indication: Headache
     Route: 030
     Dates: start: 20190501
  9. KETOPROFEN [Concomitant]
     Active Substance: KETOPROFEN
     Indication: Headache
     Route: 030
  10. IBUPROFEN [Concomitant]
     Active Substance: IBUPROFEN
     Indication: Migraine
     Route: 048
     Dates: start: 20161101
  11. FENPIVERINIUM BROMIDE\METAMIZOLE SODIUM\PITOFENONE HYDROCHLORIDE [Concomitant]
     Active Substance: FENPIVERINIUM BROMIDE\METAMIZOLE SODIUM\PITOFENONE HYDROCHLORIDE
     Indication: Migraine
     Route: 048
     Dates: start: 20180831
  12. ESCITALOPRAM OXALATE [Concomitant]
     Active Substance: ESCITALOPRAM OXALATE
     Indication: Headache
     Route: 048
     Dates: start: 20210120
  13. ASPIRIN [Concomitant]
     Active Substance: ASPIRIN
     Indication: Migraine
     Route: 048
     Dates: start: 20180102

REACTIONS (2)
  - Cervix carcinoma stage 0 [Recovered/Resolved with Sequelae]
  - Endometriosis [Recovered/Resolved]

NARRATIVE: CASE EVENT DATE: 20221010
